FAERS Safety Report 9798243 (Version 1)
Quarter: 2014Q1

REPORT INFORMATION
  Report Type: Report from Study
  Country: AU (occurrence: AU)
  Receive Date: 20140106
  Receipt Date: 20140106
  Transmission Date: 20141002
  Serious: Yes (Hospitalization)
  Sender: FDA-Public Use
  Company Number: AU-SA-2014SA000676

PATIENT
  Age: 64 Year
  Sex: Female
  Weight: 90 kg

DRUGS (12)
  1. INSULIN GLARGINE [Suspect]
     Indication: DIABETES MELLITUS
     Route: 065
  2. BLINDED THERAPY [Suspect]
     Indication: DIABETES MELLITUS
     Dosage: DOSE:28 UNIT(S)
     Route: 058
     Dates: start: 20121030, end: 20130321
  3. DIAMICRON [Concomitant]
     Indication: TYPE 2 DIABETES MELLITUS
     Dates: start: 2005
  4. CRESTOR [Concomitant]
     Indication: DYSLIPIDAEMIA
     Dates: start: 2005
  5. KARVEZIDE [Concomitant]
     Indication: HYPERTENSION
     Dates: start: 2005
  6. ONGLYZA [Concomitant]
     Indication: TYPE 2 DIABETES MELLITUS
     Dates: start: 20120408
  7. NORMISON [Concomitant]
     Indication: INSOMNIA
     Dates: start: 2010
  8. CELEBREX [Concomitant]
     Indication: OSTEOARTHRITIS
     Dates: start: 2000
  9. SOMAC [Concomitant]
     Indication: GASTRITIS
     Dates: start: 201203
  10. IMIGRAN [Concomitant]
     Indication: MIGRAINE
     Dates: start: 2005
  11. NASONEX [Concomitant]
     Indication: SEASONAL ALLERGY
     Dates: start: 1980
  12. PANADEINE [Concomitant]
     Indication: OSTEOARTHRITIS
     Dates: start: 2000

REACTIONS (1)
  - Non-cardiac chest pain [Recovered/Resolved]
